FAERS Safety Report 5692709-7 (Version None)
Quarter: 2008Q2

REPORT INFORMATION
  Report Type: 
  Country: None (occurrence: None)
  Receive Date: 20080402
  Receipt Date: 20080324
  Transmission Date: 20081010
  Serious: Yes (Life-Threatening)
  Sender: FDA-Public Use
  Company Number: US-BAXTER-2008BH002746

PATIENT
  Age: 10 Year
  Sex: Male

DRUGS (2)
  1. SUPRANE [Suspect]
     Indication: GENERAL ANAESTHESIA
     Route: 055
  2. SUCCINYLCHOLINE CHLORIDE [Concomitant]
     Indication: NEUROMUSCULAR BLOCKADE
     Dosage: DOSE UNIT:UNKNOWN
     Route: 065

REACTIONS (2)
  - ACIDOSIS [None]
  - HYPERTHERMIA MALIGNANT [None]
